FAERS Safety Report 14956879 (Version 4)
Quarter: 2018Q4

REPORT INFORMATION
  Report Type: Spontaneous
  Country: JP (occurrence: JP)
  Receive Date: 20180531
  Receipt Date: 20181019
  Transmission Date: 20190204
  Serious: Yes (Death, Life-Threatening)
  Sender: FDA-Public Use
  Company Number: JP-ACTELION-A-CH2018-173030

PATIENT
  Age: 71 Year
  Sex: Female

DRUGS (35)
  1. ETIZOLAM [Concomitant]
     Active Substance: ETIZOLAM
  2. BONALON [Concomitant]
     Active Substance: ALENDRONATE SODIUM
  3. CORTRIL [Concomitant]
     Active Substance: HYDROCORTISONE
  4. NORSPAN [Concomitant]
     Active Substance: BUPRENORPHINE
  5. ADCIRCA [Concomitant]
     Active Substance: TADALAFIL
  6. PREDONINE [Concomitant]
     Active Substance: PREDNISOLONE
  7. PREDNISOLONE. [Suspect]
     Active Substance: PREDNISOLONE
     Indication: SYSTEMIC SCLERODERMA
     Dosage: 30 MG, QD
     Route: 048
     Dates: start: 20180203, end: 20180216
  8. LYRICA [Concomitant]
     Active Substance: PREGABALIN
  9. FEBURIC [Concomitant]
     Active Substance: FEBUXOSTAT
  10. OXYGEN. [Concomitant]
     Active Substance: OXYGEN
  11. PREDNISOLONE. [Suspect]
     Active Substance: PREDNISOLONE
     Dosage: 10 MG, QD
     Route: 048
     Dates: start: 20180308, end: 20180320
  12. UPTRAVI [Concomitant]
     Active Substance: SELEXIPAG
  13. BELSOMRA [Concomitant]
     Active Substance: SUVOREXANT
  14. THYRADIN S [Concomitant]
     Active Substance: LEVOTHYROXINE SODIUM
  15. ALFACALCIDOL [Concomitant]
     Active Substance: ALFACALCIDOL
  16. REBAMIPIDE [Concomitant]
     Active Substance: REBAMIPIDE
  17. TRAMCET [Concomitant]
     Active Substance: ACETAMINOPHEN\TRAMADOL
  18. PREDNISOLONE. [Suspect]
     Active Substance: PREDNISOLONE
     Dosage: 25 MG, QD
     Route: 048
     Dates: start: 20180217, end: 20180221
  19. BISOPROLOL FUMARATE. [Concomitant]
     Active Substance: BISOPROLOL FUMARATE
  20. FERROUS CITRATE NA [Concomitant]
     Active Substance: SODIUM FERROUS CITRATE
  21. OPSUMIT [Suspect]
     Active Substance: MACITENTAN
     Indication: PULMONARY ARTERIAL HYPERTENSION
     Dosage: 10 MG, QD
     Route: 048
     Dates: start: 20180210, end: 20180331
  22. FUROSEMIDE. [Concomitant]
     Active Substance: FUROSEMIDE
  23. OLOPATADINE HYDROCHLORIDE. [Concomitant]
     Active Substance: OLOPATADINE HYDROCHLORIDE
  24. OMEPRAZOLE. [Concomitant]
     Active Substance: OMEPRAZOLE
  25. PREDNISOLONE. [Suspect]
     Active Substance: PREDNISOLONE
     Dosage: 20 MG, QD
     Route: 048
     Dates: start: 20180222, end: 20180228
  26. PREDNISOLONE. [Suspect]
     Active Substance: PREDNISOLONE
     Dosage: 30 MG, QD
     Route: 048
     Dates: start: 20180321, end: 20180331
  27. SAMSCA [Concomitant]
     Active Substance: TOLVAPTAN
  28. MICARDIS [Concomitant]
     Active Substance: TELMISARTAN
  29. LANSOPRAZOLE. [Concomitant]
     Active Substance: LANSOPRAZOLE
  30. TRAMAL [Concomitant]
     Active Substance: TRAMADOL
  31. PREDNISOLONE. [Suspect]
     Active Substance: PREDNISOLONE
     Dosage: 15 MG, QD
     Route: 048
     Dates: start: 20180301, end: 20180307
  32. ACETAMINOPHEN. [Concomitant]
     Active Substance: ACETAMINOPHEN
  33. ZOLPIDEM [Concomitant]
     Active Substance: ZOLPIDEM\ZOLPIDEM TARTRATE
  34. BAYASPIRIN [Concomitant]
     Active Substance: ASPIRIN
  35. LOXOPROFEN [Concomitant]
     Active Substance: LOXOPROFEN

REACTIONS (11)
  - Platelet count decreased [Recovered/Resolved]
  - Fluid retention [Not Recovered/Not Resolved]
  - Cellulitis [Recovering/Resolving]
  - Condition aggravated [Fatal]
  - Anaemia [Not Recovered/Not Resolved]
  - Depressed level of consciousness [Fatal]
  - Oxygen saturation decreased [Fatal]
  - Pneumonia [Fatal]
  - Pulmonary arterial hypertension [Fatal]
  - Eating disorder [Fatal]
  - Hepatic function abnormal [Not Recovered/Not Resolved]

NARRATIVE: CASE EVENT DATE: 20180210
